FAERS Safety Report 6783542-3 (Version None)
Quarter: 2010Q2

REPORT INFORMATION
  Report Type: 
  Country: None (occurrence: None)
  Receive Date: 20100622
  Receipt Date: 20100611
  Transmission Date: 20101027
  Serious: Yes (Other)
  Sender: FDA-Public Use
  Company Number: CA-JNJFOC-20100604080

PATIENT

DRUGS (3)
  1. REMICADE [Suspect]
     Indication: UVEITIS
     Dosage: PATIENT RECEIVED 52 INFUSIONS
     Route: 042
  2. BENADRYL [Concomitant]
     Route: 048
  3. TYLENOL [Concomitant]
     Route: 048

REACTIONS (1)
  - GLAUCOMA [None]
